FAERS Safety Report 12352558 (Version 15)
Quarter: 2019Q2

REPORT INFORMATION
  Report Type: Report from Study
  Country: None (occurrence: AT)
  Receive Date: 20160510
  Receipt Date: 20190523
  Transmission Date: 20190711
  Serious: Yes (Life-Threatening, Hospitalization)
  Sender: FDA-Public Use
  Company Number: AT-ABBVIE-16P-009-1581904-00

PATIENT
  Age: 72 Year
  Sex: Male
  Weight: 74.4 kg

DRUGS (52)
  1. LISINOPRIL/HCTZ [Concomitant]
     Active Substance: HYDROCHLOROTHIAZIDE\LISINOPRIL
     Indication: HYPERTENSION
     Dosage: 20/25 MG
  2. THYREX [Concomitant]
     Active Substance: LEVOTHYROXINE SODIUM
     Indication: HYPOTHYROIDISM
  3. ALLOPURINOL. [Concomitant]
     Active Substance: ALLOPURINOL
     Indication: PROPHYLAXIS
     Dates: start: 20160224, end: 201605
  4. ZOFRAN [Concomitant]
     Active Substance: ONDANSETRON HYDROCHLORIDE
     Dates: start: 20160411, end: 20160411
  5. MAGNESIUM SULFATE. [Concomitant]
     Active Substance: MAGNESIUM SULFATE
     Indication: NUTRITIONAL SUPPLEMENTATION
     Dates: start: 20160303, end: 20160303
  6. DIBONDRIN [Concomitant]
     Active Substance: DIPHENHYDRAMINE HYDROCHLORIDE
     Dates: start: 20160616, end: 20160616
  7. GLUCOSE [Concomitant]
     Active Substance: DEXTROSE
     Indication: HYPOTENSION
     Dates: start: 20160420, end: 20160420
  8. RED BLOOD CELL CONCENTRATE [Concomitant]
     Active Substance: HUMAN RED BLOOD CELL
     Indication: ANAEMIA
     Dates: start: 20160625, end: 20160625
  9. VENETOCLAX. [Suspect]
     Active Substance: VENETOCLAX
     Indication: DIFFUSE LARGE B-CELL LYMPHOMA
  10. RITUXIMAB. [Suspect]
     Active Substance: RITUXIMAB
     Indication: DIFFUSE LARGE B-CELL LYMPHOMA
  11. CYCLOPHOSPHAMIDE. [Suspect]
     Active Substance: CYCLOPHOSPHAMIDE
     Indication: DIFFUSE LARGE B-CELL LYMPHOMA
  12. UROMITEXAN [Concomitant]
     Active Substance: MESNA
     Indication: PRODUCT USED FOR UNKNOWN INDICATION
     Dates: start: 20160227
  13. BALDRIAN [Concomitant]
     Active Substance: VALERIAN
     Indication: NERVOUSNESS
     Dates: start: 20160408
  14. MOLAXOLE [Concomitant]
     Active Substance: POLYETHYLENE GLYCOL 3350\POTASSIUM CHLORIDE\SODIUM BICARBONATE\SODIUM CHLORIDE
     Indication: CONSTIPATION
     Dates: start: 20160411
  15. MAGNOSOLV [Concomitant]
     Indication: NUTRITIONAL SUPPLEMENTATION
     Dates: start: 20160502, end: 201605
  16. CYCLOPHOSPHAMIDE. [Suspect]
     Active Substance: CYCLOPHOSPHAMIDE
     Indication: B-CELL LYMPHOMA
     Dosage: DOSES PRIOR TO SAES: 27FEB16; 18MAR16; 11APR16; 06MAY16; 27MAY16; 16JUN16
     Route: 042
     Dates: start: 20160227
  17. VINCRISTINE [Suspect]
     Active Substance: VINCRISTINE
     Indication: B-CELL LYMPHOMA
     Dosage: DOSES PRIOR TO SAES: 27FEB16; 18MAR16; 11APR16; 06MAY16; 27MAY16;16JUN16
     Route: 042
     Dates: start: 20160227
  18. GUTTALAX [Concomitant]
     Indication: CONSTIPATION PROPHYLAXIS
     Dates: start: 20160215
  19. AMLODIPIN [Concomitant]
     Active Substance: AMLODIPINE BESYLATE
     Indication: HYPERTENSION
     Dates: start: 20160227, end: 20160227
  20. MEXALEN [Concomitant]
     Active Substance: ACETAMINOPHEN
     Indication: PREMEDICATION
     Dates: start: 20160527, end: 20160527
  21. MEXALEN [Concomitant]
     Active Substance: ACETAMINOPHEN
     Dates: start: 20160616, end: 20160616
  22. ZOLDEM [Concomitant]
     Active Substance: ZOLPIDEM TARTRATE
     Indication: SLEEP DISORDER
     Dates: start: 201602, end: 201604
  23. DOXORUBICIN [Suspect]
     Active Substance: DOXORUBICIN
     Indication: DIFFUSE LARGE B-CELL LYMPHOMA
  24. VINCRISTINE [Suspect]
     Active Substance: VINCRISTINE
     Indication: DIFFUSE LARGE B-CELL LYMPHOMA
  25. LOVENOX [Concomitant]
     Active Substance: ENOXAPARIN SODIUM
     Indication: THROMBOSIS PROPHYLAXIS
     Dates: start: 20160222, end: 20160304
  26. UROMITEXAN [Concomitant]
     Active Substance: MESNA
     Dates: start: 20160527, end: 20160527
  27. ZOFRAN [Concomitant]
     Active Substance: ONDANSETRON HYDROCHLORIDE
     Dates: start: 20160527, end: 20160527
  28. SUCRALAN [Concomitant]
     Indication: GASTROOESOPHAGEAL REFLUX DISEASE
     Dates: start: 20160423
  29. DIBONDRIN [Concomitant]
     Active Substance: DIPHENHYDRAMINE HYDROCHLORIDE
     Indication: PREMEDICATION
     Dates: start: 20160411, end: 20160411
  30. TEMESTA [Concomitant]
     Indication: SLEEP DISORDER
     Dates: start: 20160420, end: 20160420
  31. SODIUM CHLORIDE. [Concomitant]
     Active Substance: SODIUM CHLORIDE
     Indication: PRODUCT USED FOR UNKNOWN INDICATION
     Dates: start: 20160420, end: 20160426
  32. DOXORUBICIN [Suspect]
     Active Substance: DOXORUBICIN
     Indication: B-CELL LYMPHOMA
     Dosage: DOSES PRIOR TO SAES: 27FEB16; 18MAR16; 11APR16; 06MAY16; 27MAY16;16JUN16
     Route: 042
     Dates: start: 20160227
  33. PREDNISONE. [Suspect]
     Active Substance: PREDNISONE
     Indication: DIFFUSE LARGE B-CELL LYMPHOMA
  34. PANTOLOC [Concomitant]
     Active Substance: PANTOPRAZOLE SODIUM
     Indication: PRODUCT USED FOR UNKNOWN INDICATION
  35. UROMITEXAN [Concomitant]
     Active Substance: MESNA
     Dates: start: 20160616, end: 20160616
  36. GLANDOMED [Concomitant]
     Indication: PROPHYLAXIS
     Dates: start: 20160228, end: 20160915
  37. VENDAL [Concomitant]
     Active Substance: MORPHINE HYDROCHLORIDE
     Indication: PAIN
     Dates: start: 20160421, end: 20160425
  38. MEXALEN [Concomitant]
     Active Substance: ACETAMINOPHEN
     Indication: PAIN
     Dates: start: 20160411, end: 20160411
  39. VENETOCLAX. [Suspect]
     Active Substance: VENETOCLAX
     Indication: B-CELL LYMPHOMA
     Dosage: DOSES PRIOR TO SAES: 06MAR16; 18MAR16; 11APR16; 19APR16; 16MAY16; 05JUN16; 23JUN16
     Route: 048
     Dates: start: 20160301
  40. PASPERTIN [Concomitant]
     Indication: PROPHYLAXIS OF NAUSEA AND VOMITING
     Dates: start: 20160226, end: 20160915
  41. RITUXIMAB. [Suspect]
     Active Substance: RITUXIMAB
     Indication: B-CELL LYMPHOMA
     Dosage: DOSES PRIOR TO SAES: 27FEB16; 18MAR16; 11APR16; 06MAY16; 27MAY16; 16JUN16
     Route: 042
     Dates: start: 20160226
  42. LOVENOX [Concomitant]
     Active Substance: ENOXAPARIN SODIUM
     Dates: start: 20160423, end: 20160426
  43. ZOFRAN [Concomitant]
     Active Substance: ONDANSETRON HYDROCHLORIDE
     Indication: PROPHYLAXIS OF NAUSEA AND VOMITING
     Dates: start: 20160226, end: 201608
  44. DIBONDRIN [Concomitant]
     Active Substance: DIPHENHYDRAMINE HYDROCHLORIDE
     Dates: start: 20160527, end: 20160527
  45. VALACICLOVIR [Concomitant]
     Active Substance: VALACYCLOVIR HYDROCHLORIDE
     Indication: VIRAL INFECTION
     Dates: start: 20160502
  46. PREDNISONE. [Suspect]
     Active Substance: PREDNISONE
     Indication: B-CELL LYMPHOMA
     Dosage: DOSES PRIOR TO SAES: 01MAR16; 18MAR16; 15APR16; 10MAY16; 31MAY16;16JUN16
     Route: 048
     Dates: start: 20160226
  47. THROMBO ASS [Concomitant]
     Active Substance: ASPIRIN
     Indication: CAROTID ARTERY STENOSIS
  48. MUCOBENE [Concomitant]
     Indication: COUGH
     Dates: start: 20160213, end: 20160301
  49. UROMITEXAN [Concomitant]
     Active Substance: MESNA
     Dates: start: 20160411, end: 20160411
  50. ZOFRAN [Concomitant]
     Active Substance: ONDANSETRON HYDROCHLORIDE
     Dates: start: 20160616, end: 20160616
  51. XYLOCAINE [Concomitant]
     Active Substance: LIDOCAINE HYDROCHLORIDE
     Indication: STOMATITIS
     Dates: start: 20160420, end: 20160424
  52. HALCION [Concomitant]
     Active Substance: TRIAZOLAM
     Indication: SLEEP DISORDER
     Dates: start: 20160408, end: 20160412

REACTIONS (5)
  - C-reactive protein increased [Recovered/Resolved]
  - Neutropenia [Recovered/Resolved]
  - C-reactive protein increased [Recovered/Resolved]
  - Neutropenia [Recovered/Resolved]
  - Febrile neutropenia [Recovered/Resolved]

NARRATIVE: CASE EVENT DATE: 20160311
